FAERS Safety Report 13400009 (Version 1)
Quarter: 2017Q2

REPORT INFORMATION
  Report Type: Spontaneous
  Country: US (occurrence: US)
  Receive Date: 20170404
  Receipt Date: 20170404
  Transmission Date: 20170830
  Serious: Yes (Disabling, Other)
  Sender: FDA-Public Use
  Company Number: None

PATIENT
  Age: 26 Year
  Sex: Female
  Weight: 65.83 kg

DRUGS (10)
  1. QVAR [Concomitant]
     Active Substance: BECLOMETHASONE DIPROPIONATE
  2. NEBULIZER [Concomitant]
     Active Substance: DEVICE
  3. ALBUTEROL. [Concomitant]
     Active Substance: ALBUTEROL
  4. IBUPROFEN. [Concomitant]
     Active Substance: IBUPROFEN
  5. IRON SUPPLEMENTS [Concomitant]
     Active Substance: IRON
  6. SINGULAIR [Concomitant]
     Active Substance: MONTELUKAST SODIUM
  7. SPIRIVA [Concomitant]
     Active Substance: TIOTROPIUM BROMIDE MONOHYDRATE
  8. XOLAIR [Suspect]
     Active Substance: OMALIZUMAB
     Indication: ASTHMA
     Dosage: ?          QUANTITY:NG OR?LYYY): TI?) - BET.;?
     Dates: start: 20150601, end: 20151203
  9. ALLERGY MEDICINE [Concomitant]
     Active Substance: DIPHENHYDRAMINE HYDROCHLORIDE
  10. SYMBICORT [Concomitant]
     Active Substance: BUDESONIDE\FORMOTEROL FUMARATE DIHYDRATE

REACTIONS (19)
  - Tinnitus [None]
  - Wisdom teeth removal [None]
  - Pain [None]
  - Muscular weakness [None]
  - Palpitations [None]
  - Peripheral swelling [None]
  - Pain in extremity [None]
  - Ear pain [None]
  - Suture rupture [None]
  - Haematemesis [None]
  - Dyspnoea [None]
  - Asthma [None]
  - Injection site pain [None]
  - Vomiting [None]
  - Arthralgia [None]
  - Malaise [None]
  - Wheezing [None]
  - Migraine [None]
  - Cough [None]

NARRATIVE: CASE EVENT DATE: 20151010
